FAERS Safety Report 15310216 (Version 1)
Quarter: 2018Q3

REPORT INFORMATION
  Report Type: Spontaneous
  Country: US (occurrence: US)
  Receive Date: 20180813
  Receipt Date: 20180813
  Transmission Date: 20181010
  Serious: Yes (Other)
  Sender: FDA-Public Use
  Company Number: None

PATIENT
  Sex: Female

DRUGS (1)
  1. OXYBUTYNIN. [Suspect]
     Active Substance: OXYBUTYNIN CHLORIDE
     Dates: start: 20180809, end: 20180813

REACTIONS (2)
  - Drug hypersensitivity [None]
  - Oral pruritus [None]

NARRATIVE: CASE EVENT DATE: 20180813
